FAERS Safety Report 7496594-2 (Version None)
Quarter: 2011Q2

REPORT INFORMATION
  Report Type: 
  Country: None (occurrence: None)
  Receive Date: 20110523
  Receipt Date: 20110516
  Transmission Date: 20111010
  Serious: Yes (Hospitalization)
  Sender: FDA-Public Use
  Company Number: US-NOVEN-11US002457

PATIENT
  Sex: Male

DRUGS (8)
  1. MOTRIN [Concomitant]
     Indication: PAIN
     Route: 048
  2. KEPPRA [Concomitant]
     Indication: CONVULSION
     Route: 048
  3. FENTANYL [Suspect]
     Indication: PAIN
     Dosage: 50 UG, Q72H
     Route: 062
     Dates: start: 20110512, end: 20110516
  4. PERCOCET [Concomitant]
     Indication: PAIN
     Route: 048
  5. DILANTIN [Concomitant]
     Indication: CONVULSION
     Route: 048
  6. NEURONTIN [Concomitant]
     Indication: CONVULSION
     Route: 048
  7. CHEMOTHERAPEUTICS [Concomitant]
     Indication: LYMPHOMA
  8. XANAX [Concomitant]
     Indication: ANXIETY
     Route: 048

REACTIONS (1)
  - CONVULSION [None]
